FAERS Safety Report 16296035 (Version 2)
Quarter: 2019Q3

REPORT INFORMATION
  Report Type: Spontaneous
  Country: KR (occurrence: KR)
  Receive Date: 20190510
  Receipt Date: 20190903
  Transmission Date: 20191004
  Serious: Yes (Death)
  Sender: FDA-Public Use
  Company Number: KR-BIOCRYST PHARMACEUTICALS, INC.-2019BCR00152

PATIENT
  Age: 12 Year
  Sex: Female
  Weight: 47 kg

DRUGS (1)
  1. PERAMIFLU [Suspect]
     Active Substance: PERAMIVIR
     Indication: INFLUENZA
     Dosage: ADEQUATE DOSE FOR 47 KG; INJECTION
     Dates: start: 20190428, end: 20190428

REACTIONS (2)
  - Dyspnoea [Fatal]
  - Diabetic ketoacidosis [Fatal]
